FAERS Safety Report 21768891 (Version 2)
Quarter: 2023Q1

REPORT INFORMATION
  Report Type: Report from Study
  Country: US (occurrence: US)
  Receive Date: 20221222
  Receipt Date: 20230116
  Transmission Date: 20230418
  Serious: Yes (Death, Hospitalization, Other)
  Sender: FDA-Public Use
  Company Number: US-ACADIA PHARMACEUTICALS INC.-ACA-2022-PIM-004382

PATIENT
  Age: 80 Year
  Sex: Male

DRUGS (4)
  1. NUPLAZID [Suspect]
     Active Substance: PIMAVANSERIN TARTRATE
     Indication: Parkinson^s disease psychosis
     Dosage: 34 MILLIGRAM, QD
     Route: 065
     Dates: end: 20221213
  2. GALANTAMINE [Concomitant]
     Active Substance: GALANTAMINE
     Dosage: UNK
     Dates: start: 202108
  3. LISINOPRIL [Concomitant]
     Active Substance: LISINOPRIL
     Dosage: PRIOR TO AUG-21
  4. ASPIRIN [Concomitant]
     Active Substance: ASPIRIN
     Dosage: PRIOR TO AUG-21

REACTIONS (1)
  - Cardiac arrest [Recovered/Resolved]

NARRATIVE: CASE EVENT DATE: 20221206
